FAERS Safety Report 14033732 (Version 2)
Quarter: 2017Q4

REPORT INFORMATION
  Report Type: Spontaneous
  Country: FR (occurrence: FR)
  Receive Date: 20171003
  Receipt Date: 20171214
  Transmission Date: 20180321
  Serious: Yes (Other)
  Sender: FDA-Public Use
  Company Number: PHHY2017FR144333

PATIENT
  Age: 53 Year
  Sex: Male
  Weight: 67 kg

DRUGS (1)
  1. COSENTYX [Suspect]
     Active Substance: SECUKINUMAB
     Indication: PSORIASIS
     Dosage: 300 MG, QMO
     Route: 058
     Dates: start: 20160628, end: 20170901

REACTIONS (3)
  - Inappropriate schedule of drug administration [Unknown]
  - Skin discolouration [Unknown]
  - Clear cell renal cell carcinoma [Recovered/Resolved with Sequelae]

NARRATIVE: CASE EVENT DATE: 20160628
